FAERS Safety Report 8118551-5 (Version None)
Quarter: 2012Q1

REPORT INFORMATION
  Report Type: 
  Country: None (occurrence: None)
  Receive Date: 20120207
  Receipt Date: 20120126
  Transmission Date: 20120608
  Serious: Yes (Hospitalization, Other)
  Sender: FDA-Public Use
  Company Number: CO-SANOFI-AVENTIS-2012SA006194

PATIENT
  Age: 15 Year
  Sex: Female
  Weight: 69 kg

DRUGS (2)
  1. APIDRA [Suspect]
     Indication: TYPE 1 DIABETES MELLITUS
     Route: 058
     Dates: start: 20090101
  2. LANTUS [Suspect]
     Indication: TYPE 1 DIABETES MELLITUS
     Route: 058
     Dates: start: 20090101

REACTIONS (2)
  - DIABETIC COMA [None]
  - BLOOD GLUCOSE FLUCTUATION [None]
